FAERS Safety Report 4318167-2 (Version None)
Quarter: 2004Q1

REPORT INFORMATION
  Report Type: 
  Country: None (occurrence: None)
  Receive Date: 20040317
  Receipt Date: 20040316
  Transmission Date: 20041129
  Serious: Yes (Hospitalization)
  Sender: FDA-Public Use
  Company Number: JP-ROCHE-361727

PATIENT
  Age: 62 Year
  Sex: Male

DRUGS (1)
  1. PANALDINE [Suspect]
     Indication: DRUG USE FOR UNKNOWN INDICATION
     Route: 048
     Dates: start: 20020615, end: 20020815

REACTIONS (1)
  - INTERSTITIAL LUNG DISEASE [None]
